FAERS Safety Report 19620589 (Version 2)
Quarter: 2022Q3

REPORT INFORMATION
  Report Type: Spontaneous
  Country: US (occurrence: US)
  Receive Date: 20210728
  Receipt Date: 20220830
  Transmission Date: 20221026
  Serious: Yes (Death, Other)
  Sender: FDA-Public Use
  Company Number: US-SA-2021SA248383

PATIENT
  Age: 43 Year
  Sex: Female

DRUGS (1)
  1. ZANTAC [Suspect]
     Active Substance: RANITIDINE HYDROCHLORIDE
     Dosage: DOSE: UNKNOWN AT THIS TIME FREQUENCY: OTHER
     Route: 065
     Dates: start: 199001, end: 201901

REACTIONS (6)
  - Breast cancer female [Fatal]
  - Neoplasm malignant [Fatal]
  - Bone cancer metastatic [Fatal]
  - Hepatic cancer metastatic [Fatal]
  - Brain cancer metastatic [Fatal]
  - Metastases to spine [Fatal]

NARRATIVE: CASE EVENT DATE: 20130101
